FAERS Safety Report 7420312-7 (Version None)
Quarter: 2011Q2

REPORT INFORMATION
  Report Type: 
  Country: None (occurrence: None)
  Receive Date: 20110407
  Receipt Date: 20110321
  Transmission Date: 20111010
  Serious: Yes (Hospitalization, Other)
  Sender: FDA-Public Use
  Company Number: ACO_22638_2011

PATIENT
  Age: 57 Year
  Sex: Female

DRUGS (7)
  1. FOLIC ACID [Concomitant]
  2. TYSABRI [Concomitant]
  3. SOLU-MEDROL [Concomitant]
  4. AMPYRA [Suspect]
     Indication: PRODUCT USED FOR UNKNOWN INDICATION
     Dosage: 10 MG, ORAL
     Route: 048
     Dates: start: 20100701, end: 20110205
  5. GABAPENTIN [Concomitant]
  6. VITAMIN D [Concomitant]
  7. ASPIRIN [Concomitant]

REACTIONS (2)
  - GASTROENTERITIS VIRAL [None]
  - SIMPLE PARTIAL SEIZURES [None]
